FAERS Safety Report 9401501 (Version 2)
Quarter: 2013Q3

REPORT INFORMATION
  Report Type: Spontaneous
  Country: JP (occurrence: JP)
  Receive Date: 20130716
  Receipt Date: 20130717
  Transmission Date: 20140515
  Serious: Yes (Hospitalization)
  Sender: FDA-Public Use
  Company Number: JP-ROCHE-1247533

PATIENT
  Age: 9 Decade
  Sex: Female

DRUGS (4)
  1. XELODA [Suspect]
     Indication: COLON CANCER
     Route: 048
  2. WARFARIN POTASSIUM [Interacting]
     Indication: PRODUCT USED FOR UNKNOWN INDICATION
     Dosage: DOSAGE IS UNCERTAIN.
     Route: 048
  3. AVASTIN [Concomitant]
     Indication: COLON CANCER
     Dosage: FOUR COURSE
     Route: 041
  4. ELPLAT [Concomitant]
     Indication: COLON CANCER
     Dosage: DOSAGE IS UNCERTAIN. ?FOUR COURSE END
     Route: 041

REACTIONS (3)
  - Contusion [Recovered/Resolved]
  - Arthralgia [Recovered/Resolved]
  - Drug interaction [Unknown]
